FAERS Safety Report 21375899 (Version 1)
Quarter: 2022Q3

REPORT INFORMATION
  Report Type: Spontaneous
  Country: US (occurrence: US)
  Receive Date: 20220926
  Receipt Date: 20220926
  Transmission Date: 20221027
  Serious: Yes (Other)
  Sender: FDA-Public Use
  Company Number: US-SA-SAC20220923001253

PATIENT
  Age: 32 Year

DRUGS (1)
  1. ZANTAC [Suspect]
     Active Substance: RANITIDINE HYDROCHLORIDE
     Indication: Gastrooesophageal reflux disease
     Dosage: FREQUENCY-OTHER UNKNOWN AT THIS TIME
     Dates: start: 201001, end: 202012

REACTIONS (1)
  - Hepatic cancer stage I [Not Recovered/Not Resolved]

NARRATIVE: CASE EVENT DATE: 20210101
